FAERS Safety Report 18984005 (Version 5)
Quarter: 2022Q1

REPORT INFORMATION
  Report Type: Other
  Country: DE (occurrence: None)
  Receive Date: 20210309
  Receipt Date: 20220128
  Transmission Date: 20220423
  Serious: Yes (Hospitalization)
  Sender: FDA-Public Use
  Company Number: DE-ROCHE-2339514

PATIENT
  Age: 26 Year
  Sex: Male

DRUGS (7)
  1. OCREVUS [Suspect]
     Active Substance: OCRELIZUMAB
     Indication: Relapsing-remitting multiple sclerosis
     Dosage: THEN 600 MG EVERY 6 MONTH
     Route: 042
     Dates: start: 20190613
  2. OCREVUS [Suspect]
     Active Substance: OCRELIZUMAB
     Dosage: SUBSEQUENT DOSES OF OCRELIZUMAB: 01/FEB/2021, 24/AUG/2021
     Route: 042
     Dates: start: 20191223
  3. CORTISONE [Suspect]
     Active Substance: CORTISONE
     Indication: Product used for unknown indication
     Route: 042
     Dates: start: 20191224
  4. CORTISONE [Suspect]
     Active Substance: CORTISONE
     Route: 042
     Dates: start: 20210223, end: 20210227
  5. ARCOXIA [Concomitant]
     Active Substance: ETORICOXIB
  6. METAMIZOLE [Concomitant]
     Active Substance: METAMIZOLE
  7. LYRICA [Concomitant]
     Active Substance: PREGABALIN

REACTIONS (6)
  - Multiple sclerosis relapse [Recovered/Resolved]
  - Multiple sclerosis relapse [Recovered/Resolved]
  - Fatigue [Not Recovered/Not Resolved]
  - Insomnia [Recovered/Resolved]
  - Nasopharyngitis [Recovered/Resolved]
  - Drug ineffective [Unknown]

NARRATIVE: CASE EVENT DATE: 20190613
